FAERS Safety Report 8707883 (Version 2)
Quarter: 2012Q4

REPORT INFORMATION
  Report Type: 
  Country: US (occurrence: US)
  Receive Date: 20120806
  Receipt Date: 20120907
  Transmission Date: 20130627
  Serious: No
  Sender: FDA-Public Use
  Company Number: US-PFIZER INC-2012187503

PATIENT
  Age: 64 Year
  Sex: Female
  Weight: 66.21 kg

DRUGS (5)
  1. ALPRAZOLAM [Suspect]
     Indication: ANXIETY
     Dosage: 0.25 mg, 3x/day
     Route: 048
     Dates: start: 201111, end: 201206
  2. ALPRAZOLAM [Suspect]
     Indication: PANIC ATTACK
     Dosage: 0.5 mg, 3x/day
     Route: 048
     Dates: start: 201206, end: 201206
  3. ALPRAZOLAM [Suspect]
     Dosage: 0.5 mg, 3x/day
     Route: 048
     Dates: start: 20120719, end: 2012
  4. ALPRAZOLAM [Suspect]
     Dosage: 0.5 mg, 4x/day, as needed
     Route: 048
     Dates: end: 20120801
  5. OMEPRAZOLE [Concomitant]
     Indication: GASTROOESOPHAGEAL REFLUX DISEASE
     Dosage: 20 mg, 2x/day
     Dates: start: 20120321

REACTIONS (1)
  - Drug ineffective [Unknown]
